FAERS Safety Report 19026885 (Version 1)
Quarter: 2021Q1

REPORT INFORMATION
  Report Type: Spontaneous
  Country: US (occurrence: US)
  Receive Date: 20210318
  Receipt Date: 20210318
  Transmission Date: 20210420
  Serious: Yes (Hospitalization)
  Sender: FDA-Public Use
  Company Number: US-MERZ PHARMACEUTICALS GMBH-21-00968

PATIENT
  Age: 30 Year
  Sex: Female
  Weight: 51.75 kg

DRUGS (1)
  1. XEOMIN [Suspect]
     Active Substance: INCOBOTULINUMTOXINA
     Indication: SKIN COSMETIC PROCEDURE

REACTIONS (12)
  - Dysarthria [Unknown]
  - Anxiety [Unknown]
  - Migraine [Unknown]
  - Eyelid disorder [Unknown]
  - Dry eye [Unknown]
  - Headache [Unknown]
  - Vision blurred [Unknown]
  - Muscle atrophy [Unknown]
  - Lid sulcus deepened [Unknown]
  - Alopecia [Unknown]
  - Dizziness [Unknown]
  - Panic attack [Unknown]

NARRATIVE: CASE EVENT DATE: 20201106
